FAERS Safety Report 15023251 (Version 1)
Quarter: 2018Q2

REPORT INFORMATION
  Report Type: Spontaneous
  Country: US (occurrence: US)
  Receive Date: 20180602
  Receipt Date: 20180602
  Transmission Date: 20180711
  Serious: Yes (Life-Threatening, Hospitalization, Disabling)
  Sender: FDA-Public Use
  Company Number: None

PATIENT
  Age: 61 Year
  Sex: Male
  Weight: 70.2 kg

DRUGS (6)
  1. CIPROFLOXACIN HCL 500 MG. TAB TAKEN TWICE DAILY FOR 21 DAYS [Suspect]
     Active Substance: CIPROFLOXACIN HYDROCHLORIDE
     Indication: PROSTATE INFECTION
     Dosage: ?          QUANTITY:41 TABLET(S);?
     Route: 048
     Dates: start: 20180303, end: 20180323
  2. AMITRIPTYLINE [Concomitant]
     Active Substance: AMITRIPTYLINE
  3. PRILOSEC [Concomitant]
     Active Substance: OMEPRAZOLE MAGNESIUM
  4. GUAYFENESIN [Concomitant]
  5. ATIVAN [Concomitant]
     Active Substance: LORAZEPAM
  6. LAMICTAL [Concomitant]
     Active Substance: LAMOTRIGINE

REACTIONS (7)
  - Myalgia [None]
  - Tendon pain [None]
  - Neck pain [None]
  - Toxicity to various agents [None]
  - Drug detoxification [None]
  - Arthralgia [None]
  - Pain in extremity [None]

NARRATIVE: CASE EVENT DATE: 20180325
